FAERS Safety Report 4621130-5 (Version None)
Quarter: 2005Q1

REPORT INFORMATION
  Report Type: 
  Country: None (occurrence: None)
  Receive Date: 20050328
  Receipt Date: 20050314
  Transmission Date: 20050727
  Serious: Yes (Hospitalization)
  Sender: FDA-Public Use
  Company Number: 2005044141

PATIENT
  Age: 76 Year
  Sex: Male

DRUGS (1)
  1. DIPHENHYDRAMINE HCL [Suspect]
     Indication: SUICIDE ATTEMPT
     Dosage: 200 MG ONCE, ORAL
     Route: 048

REACTIONS (4)
  - ANTICHOLINERGIC SYNDROME [None]
  - ELECTROENCEPHALOGRAM ABNORMAL [None]
  - INTENTIONAL MISUSE [None]
  - SUICIDE ATTEMPT [None]
